FAERS Safety Report 9888643 (Version 1)
Quarter: 2014Q1

REPORT INFORMATION
  Report Type: Report from Study
  Country: BR (occurrence: BR)
  Receive Date: 20140211
  Receipt Date: 20140211
  Transmission Date: 20141002
  Serious: Yes (Other)
  Sender: FDA-Public Use
  Company Number: PHHY2014BR015616

PATIENT
  Sex: Male
  Weight: 69 kg

DRUGS (7)
  1. ONBREZ [Suspect]
     Indication: DYSPNOEA
     Dosage: 150 MG, MORNING
     Route: 055
     Dates: start: 20131020
  2. ONBREZ [Suspect]
     Indication: OFF LABEL USE
  3. TIOTROPIUM BROMIDE [Concomitant]
     Indication: RESPIRATORY DISORDER
     Dosage: 2.5 UG, UNK
     Dates: start: 20131020
  4. CAPTOPRIL [Concomitant]
     Indication: BLOOD PRESSURE INCREASED
     Dosage: 25 MG,  FOR MORE THAN 10 YEARS AGO
  5. AMIODARONE [Concomitant]
     Indication: ARRHYTHMIA
     Dosage: 200 MG, 2 MONTHS AGO
  6. COMBIRON [Concomitant]
     Indication: ANAEMIA
     Dosage: UNK UKN, UNK
  7. BISACODYL [Concomitant]
     Indication: CONSTIPATION
     Dosage: UNK UKN, UNK

REACTIONS (4)
  - Lung neoplasm malignant [Recovering/Resolving]
  - Arrhythmia [Recovering/Resolving]
  - Pneumonia [Recovering/Resolving]
  - Feeling cold [Recovering/Resolving]
